FAERS Safety Report 6803656-9 (Version None)
Quarter: 2010Q2

REPORT INFORMATION
  Report Type: 
  Country: None (occurrence: None)
  Receive Date: 20100628
  Receipt Date: 20100623
  Transmission Date: 20101027
  Serious: Yes (Death, Hospitalization, Other)
  Sender: FDA-Public Use
  Company Number: PT-BRISTOL-MYERS SQUIBB COMPANY-15154818

PATIENT
  Age: 68 Year
  Sex: Male

DRUGS (1)
  1. SPRYCEL [Suspect]
     Indication: CHRONIC MYELOID LEUKAEMIA
     Dosage: STARTED AS 100MG FOR 1 YR AND INCREASED TO 140MG ON 11MAY09
     Route: 048
     Dates: start: 20090601, end: 20100609

REACTIONS (2)
  - ACUTE PULMONARY OEDEMA [None]
  - MALIGNANT NEOPLASM PROGRESSION [None]
